FAERS Safety Report 23325875 (Version 2)
Quarter: 2024Q2

REPORT INFORMATION
  Report Type: Spontaneous
  Country: IT (occurrence: IT)
  Receive Date: 20231221
  Receipt Date: 20240404
  Transmission Date: 20240716
  Serious: Yes (Other)
  Sender: FDA-Public Use
  Company Number: None

PATIENT
  Age: 74 Year
  Sex: Female

DRUGS (8)
  1. EDOXABAN TOSYLATE [Suspect]
     Active Substance: EDOXABAN TOSYLATE
     Indication: Atrial fibrillation
     Dosage: 60 MG, QD (28CPR RIV 60MG - 1 CP/DAY)
     Route: 048
  2. OMEGA-3 FATTY ACIDS [Concomitant]
     Active Substance: OMEGA-3 FATTY ACIDS
     Indication: Hypertriglyceridaemia
     Dosage: 3 DF, QD (3 DF, QD (20CPS SOFT 1000MG ? 3 TABLETS/DAY))
     Route: 048
     Dates: start: 2022
  3. BISOPROLOL [Concomitant]
     Active Substance: BISOPROLOL\BISOPROLOL FUMARATE
     Indication: Hypertensive heart disease
     Dosage: 1 DF, QD (28CPR RIV 1.25MG ? 1 TABLET/DAY)
     Route: 048
     Dates: start: 2022
  4. CARDURA [Concomitant]
     Active Substance: DOXAZOSIN MESYLATE
     Indication: Hypertensive heart disease
     Dosage: 2 DF, QD (2 DF, QD (20CPR DIV 4MG ? 2 TABLETS/DAY))
     Route: 048
     Dates: start: 2022
  5. OLMESARTAN MEDOXOMIL [Concomitant]
     Active Substance: OLMESARTAN MEDOXOMIL
     Indication: Hypertensive heart disease
     Dosage: 1 DF, QD (1 DF, QD (28CPR RIV 40MG ? 1 TABLET/DAY))
     Route: 048
     Dates: start: 2022
  6. ALLOPURINOL [Concomitant]
     Active Substance: ALLOPURINOL
     Indication: Hyperuricaemia
     Dosage: 1 DF, QD (1 DF, QD (30CPR DIV 300MG ? 1 TABLET/DAY))
     Route: 048
     Dates: start: 2022
  7. PROPAFENONE [Concomitant]
     Active Substance: PROPAFENONE
     Indication: Ventricular tachycardia
     Dosage: 1 DF, QD (1 DF, QD (28CPS 425MG RP PVC/A-1 TABLET/DAY))
     Route: 048
     Dates: start: 2022
  8. PROPAFENONE [Concomitant]
     Active Substance: PROPAFENONE
     Indication: Hypertensive heart disease

REACTIONS (3)
  - Renal failure [Recovered/Resolved]
  - Glomerular filtration rate decreased [Recovered/Resolved]
  - Anaemia [Recovered/Resolved]

NARRATIVE: CASE EVENT DATE: 20220801
